FAERS Safety Report 13141464 (Version 3)
Quarter: 2017Q1

REPORT INFORMATION
  Report Type: Spontaneous
  Country: CA (occurrence: CA)
  Receive Date: 20170124
  Receipt Date: 20170313
  Transmission Date: 20170428
  Serious: Yes (Death)
  Sender: FDA-Public Use
  Company Number: CA-SUNOVION-2017SUN000231

PATIENT
  Age: 21 Year
  Sex: Male

DRUGS (2)
  1. LATUDA [Suspect]
     Active Substance: LURASIDONE HYDROCHLORIDE
     Indication: BIPOLAR DISORDER
     Dosage: 40 MG, UNK
     Route: 048
     Dates: start: 2016
  2. LITHIUM. [Concomitant]
     Active Substance: LITHIUM

REACTIONS (5)
  - Depression [Unknown]
  - Completed suicide [Fatal]
  - Drug administration error [Unknown]
  - Emotional poverty [Unknown]
  - Mania [Unknown]

NARRATIVE: CASE EVENT DATE: 201608
